FAERS Safety Report 20959878 (Version 2)
Quarter: 2022Q3

REPORT INFORMATION
  Report Type: Report from Study
  Country: US (occurrence: US)
  Receive Date: 20220614
  Receipt Date: 20220712
  Transmission Date: 20221026
  Serious: Yes (Hospitalization, Other)
  Sender: FDA-Public Use
  Company Number: US-ABBVIE-22K-163-4427208-00

PATIENT
  Age: 59 Year
  Sex: Female

DRUGS (1)
  1. HUMIRA [Suspect]
     Active Substance: ADALIMUMAB
     Indication: Rheumatoid arthritis
     Dosage: CITRATE FREE
     Route: 058

REACTIONS (6)
  - Toxic encephalopathy [Unknown]
  - Pneumonia [Unknown]
  - Metabolic encephalopathy [Unknown]
  - Immunodeficiency [Unknown]
  - Pneumonia legionella [Recovering/Resolving]
  - Hepatic infection [Unknown]

NARRATIVE: CASE EVENT DATE: 20220601
